FAERS Safety Report 14562166 (Version 1)
Quarter: 2018Q1

REPORT INFORMATION
  Report Type: Spontaneous
  Country: US (occurrence: US)
  Receive Date: 20180221
  Receipt Date: 20180221
  Transmission Date: 20180509
  Serious: No
  Sender: FDA-Public Use
  Company Number: None

PATIENT
  Age: 57 Year
  Sex: Female
  Weight: 97 kg

DRUGS (12)
  1. GABAPENTIN. [Concomitant]
     Active Substance: GABAPENTIN
     Dates: start: 20161201
  2. KLOR-CON [Concomitant]
     Active Substance: POTASSIUM CHLORIDE
     Dates: start: 20170101
  3. PAROXETINE. [Concomitant]
     Active Substance: PAROXETINE
     Dates: start: 20160601
  4. ACETAMINOPHEN. [Concomitant]
     Active Substance: ACETAMINOPHEN
     Dates: start: 20141101
  5. ASPIRIN. [Concomitant]
     Active Substance: ASPIRIN
     Dates: start: 20120401
  6. METFORMIN [Concomitant]
     Active Substance: METFORMIN HYDROCHLORIDE
     Dates: start: 20111201
  7. APIDRA [Concomitant]
     Active Substance: INSULIN GLULISINE
     Dates: start: 20160401
  8. LISINOPRIL. [Concomitant]
     Active Substance: LISINOPRIL
     Dates: start: 20140101
  9. BASAGLAR [Suspect]
     Active Substance: INSULIN GLARGINE
     Indication: TYPE 2 DIABETES MELLITUS
     Route: 058
  10. VITAMIN D3 [Concomitant]
     Active Substance: CHOLECALCIFEROL
     Dates: start: 20170201
  11. LOVASTATIN. [Concomitant]
     Active Substance: LOVASTATIN
     Dates: start: 20140101
  12. NAPROXEN. [Concomitant]
     Active Substance: NAPROXEN
     Dates: start: 20140401

REACTIONS (1)
  - Systemic lupus erythematosus rash [None]
